FAERS Safety Report 5285163-0 (Version None)
Quarter: 2007Q1

REPORT INFORMATION
  Report Type: 
  Country: None (occurrence: None)
  Receive Date: 20061229
  Receipt Date: 20060911
  Transmission Date: 20070707
  Serious: Yes (Other)
  Sender: FDA-Public Use
  Company Number: 2006UW17843

PATIENT
  Age: 62 Year
  Sex: Female

DRUGS (4)
  1. CRESTOR [Suspect]
  2. POTASSIUM ACETATE [Concomitant]
  3. LANOXIN [Concomitant]
  4. RESTORIL [Concomitant]

REACTIONS (1)
  - HYPERHIDROSIS [None]
